FAERS Safety Report 5170502-1 (Version None)
Quarter: 2006Q4

REPORT INFORMATION
  Report Type: 
  Country: None (occurrence: None)
  Receive Date: 20061204
  Receipt Date: 20061122
  Transmission Date: 20070319
  Serious: Yes (Hospitalization)
  Sender: FDA-Public Use
  Company Number: TCI2006A05489

PATIENT
  Age: 89 Year
  Sex: Female

DRUGS (5)
  1. ACTOS [Suspect]
     Dosage: 15 MG (15 MG, 1 D); PER ORAL
     Route: 048
  2. THEO-DUR [Concomitant]
  3. AMARYL [Concomitant]
  4. NORVASC [Concomitant]
  5. LEUKOTRIENE RECEPTOR ANTAGONIST [Concomitant]

REACTIONS (2)
  - ATELECTASIS [None]
  - PLEURAL EFFUSION [None]
